FAERS Safety Report 9909578 (Version 1)
Quarter: 2014Q1

REPORT INFORMATION
  Report Type: Spontaneous
  Country: BR (occurrence: BR)
  Receive Date: 20140219
  Receipt Date: 20140219
  Transmission Date: 20141002
  Serious: Yes (Death, Hospitalization)
  Sender: FDA-Public Use
  Company Number: BR-PFIZER INC-2014045728

PATIENT
  Sex: Male

DRUGS (1)
  1. SOMAVERT [Suspect]
     Dosage: 10 MG, 1X/DAY
     Dates: start: 2013

REACTIONS (1)
  - Cerebrovascular accident [Fatal]
